FAERS Safety Report 24538816 (Version 3)
Quarter: 2024Q4

REPORT INFORMATION
  Report Type: Report from Study
  Country: CA (occurrence: CA)
  Receive Date: 20241023
  Receipt Date: 20241205
  Transmission Date: 20250114
  Serious: Yes (Hospitalization, Other)
  Sender: GLAXOSMITHKLINE
  Company Number: CA-GLAXOSMITHKLINE INC-CA2024128048

PATIENT

DRUGS (10)
  1. MEPOLIZUMAB [Suspect]
     Active Substance: MEPOLIZUMAB
     Indication: Asthma
     Dosage: 100 MG, Q4W
     Route: 058
     Dates: start: 20241011
  2. MONTELUKAST [Concomitant]
     Active Substance: MONTELUKAST
     Indication: Product used for unknown indication
     Dosage: 10 MG, QD, DIE
     Route: 048
     Dates: start: 202409
  3. PREDNISONE [Concomitant]
     Active Substance: PREDNISONE
     Indication: Product used for unknown indication
     Dosage: UNK
     Dates: start: 202407
  4. PREDNISONE [Concomitant]
     Active Substance: PREDNISONE
     Dosage: UNK
     Dates: start: 202408
  5. PREDNISONE [Concomitant]
     Active Substance: PREDNISONE
     Dosage: UNK
     Dates: start: 202409
  6. PREDNISONE [Concomitant]
     Active Substance: PREDNISONE
     Dosage: 50 MG, X5 DAY
  7. AMLODIPINE [Concomitant]
     Active Substance: AMLODIPINE BESYLATE
     Indication: Product used for unknown indication
     Dosage: 10 MG, QD
     Route: 048
  8. TRELEGY ELLIPTA [Concomitant]
     Active Substance: FLUTICASONE FUROATE\UMECLIDINIUM BROMIDE\VILANTEROL TRIFENATATE
     Indication: Product used for unknown indication
     Dosage: 1 DF, QD, 100 MCG, DIE
     Route: 055
     Dates: start: 20240722
  9. ARNUITY ELLIPTA [Concomitant]
     Active Substance: FLUTICASONE FUROATE
     Indication: Product used for unknown indication
     Dosage: 1 DF, QD, 100 MCG
     Route: 055
     Dates: start: 20240722
  10. ALBUTEROL [Concomitant]
     Active Substance: ALBUTEROL
     Indication: Product used for unknown indication
     Dosage: 1 DF, QD,100 MCG, 24 HRS PRN

REACTIONS (13)
  - Hospitalisation [Unknown]
  - Dyspnoea [Unknown]
  - Deafness [Unknown]
  - Dyspnoea exertional [Unknown]
  - Wheezing [Unknown]
  - Chest pain [Recovering/Resolving]
  - Chest discomfort [Unknown]
  - Fatigue [Unknown]
  - Oedema peripheral [Unknown]
  - Irregular breathing [Unknown]
  - Cough [Unknown]
  - Lung disorder [Unknown]
  - Hypoacusis [Unknown]
